FAERS Safety Report 25821253 (Version 1)
Quarter: 2025Q3

REPORT INFORMATION
  Report Type: Spontaneous
  Country: US (occurrence: US)
  Receive Date: 20250919
  Receipt Date: 20250919
  Transmission Date: 20251021
  Serious: No
  Sender: CIPLA
  Company Number: US-CIPLA LTD.-2025US11403

PATIENT

DRUGS (3)
  1. ALBUTEROL [Suspect]
     Active Substance: ALBUTEROL
     Indication: Respiration abnormal
     Dates: start: 2024
  2. ALBUTEROL [Suspect]
     Active Substance: ALBUTEROL
     Dates: start: 202506
  3. ALBUTEROL [Suspect]
     Active Substance: ALBUTEROL
     Dates: start: 202507

REACTIONS (4)
  - Drug dose omission by device [Unknown]
  - Device use issue [Unknown]
  - Product container seal issue [Unknown]
  - Device delivery system issue [Unknown]

NARRATIVE: CASE EVENT DATE: 20250901
